FAERS Safety Report 16053311 (Version 1)
Quarter: 2019Q1

REPORT INFORMATION
  Report Type: Spontaneous
  Country: CN (occurrence: CN)
  Receive Date: 20190308
  Receipt Date: 20190308
  Transmission Date: 20190418
  Serious: Yes (Other)
  Sender: FDA-Public Use
  Company Number: CN-B. BRAUN MEDICAL INC.-2063752

PATIENT
  Age: 79 Year
  Sex: Male
  Weight: 85 kg

DRUGS (1)
  1. NUTRILIPID I.V. FAT EMULSION [Suspect]
     Active Substance: SOYBEAN OIL
     Indication: NUTRITIONAL SUPPLEMENTATION

REACTIONS (3)
  - Peripheral coldness [None]
  - Chills [None]
  - Seizure [None]
